FAERS Safety Report 17192279 (Version 2)
Quarter: 2020Q3

REPORT INFORMATION
  Report Type: Spontaneous
  Country: CO (occurrence: CO)
  Receive Date: 20191223
  Receipt Date: 20200731
  Transmission Date: 20201102
  Serious: Yes (Death, Hospitalization, Other)
  Sender: FDA-Public Use
  Company Number: CO-EMD SERONO-9135950

PATIENT
  Age: 75 Year
  Sex: Female

DRUGS (7)
  1. COSENTYX [Suspect]
     Active Substance: SECUKINUMAB
     Indication: PSORIASIS
     Dosage: DEVICE: PRE FILLED SYRINGE
     Route: 058
     Dates: start: 20180717, end: 20190926
  2. METOPROLOL SUCCINATE. [Concomitant]
     Active Substance: METOPROLOL SUCCINATE
     Indication: PRODUCT USED FOR UNKNOWN INDICATION
  3. SPIRONOLACTONE AND HYDROCHLOROTHIAZIDE [Concomitant]
     Active Substance: HYDROCHLOROTHIAZIDE\SPIRONOLACTONE
     Indication: PRODUCT USED FOR UNKNOWN INDICATION
  4. LEVOTHYROXINE. [Concomitant]
     Active Substance: LEVOTHYROXINE
     Indication: PRODUCT USED FOR UNKNOWN INDICATION
  5. IRBESARTAN. [Suspect]
     Active Substance: IRBESARTAN
     Indication: PRODUCT USED FOR UNKNOWN INDICATION
     Route: 065
  6. METFORMIN [Suspect]
     Active Substance: METFORMIN HYDROCHLORIDE
     Indication: PRODUCT USED FOR UNKNOWN INDICATION
     Route: 065
  7. FUROSEMIDE W/POTASSIUM CHLORIDE [Suspect]
     Active Substance: FUROSEMIDE\POTASSIUM CHLORIDE
     Indication: PRODUCT USED FOR UNKNOWN INDICATION
     Route: 065

REACTIONS (14)
  - Type 2 diabetes mellitus [Recovering/Resolving]
  - Hypothyroidism [Recovering/Resolving]
  - Hepatic mass [Recovering/Resolving]
  - Osteoarthritis [Recovering/Resolving]
  - Dyslipidaemia [Recovering/Resolving]
  - Obesity [Recovering/Resolving]
  - Hypertension [Recovering/Resolving]
  - Peripheral venous disease [Recovering/Resolving]
  - Hepatic cirrhosis [Recovering/Resolving]
  - Ascites [Unknown]
  - Liver disorder [Recovering/Resolving]
  - Cardio-respiratory arrest [Fatal]
  - Diarrhoea [Recovering/Resolving]
  - Splenomegaly [Recovering/Resolving]

NARRATIVE: CASE EVENT DATE: 20191103
